FAERS Safety Report 7481372-0 (Version None)
Quarter: 2011Q2

REPORT INFORMATION
  Report Type: 
  Country: None (occurrence: None)
  Receive Date: 20110516
  Receipt Date: 20110426
  Transmission Date: 20111010
  Serious: No
  Sender: FDA-Public Use
  Company Number: US-B.I. PHARMACEUTICALS,INC./RIDGEFIELD-2011-BP-02563BP

PATIENT
  Sex: Male

DRUGS (3)
  1. LOPRESSOR [Concomitant]
     Indication: ATRIAL FIBRILLATION
     Dosage: 200 MG
  2. PRADAXA [Suspect]
     Indication: ATRIAL FIBRILLATION
     Dosage: 300 MG
     Route: 048
     Dates: start: 20101225
  3. LANOXIN [Concomitant]
     Indication: ATRIAL FIBRILLATION
     Dosage: 0.25 MG

REACTIONS (4)
  - DYSPHONIA [None]
  - SENSATION OF FOREIGN BODY [None]
  - DYSPHAGIA [None]
  - NASAL CONGESTION [None]
